FAERS Safety Report 5423147-X (Version None)
Quarter: 2007Q3

REPORT INFORMATION
  Report Type: 
  Country: None (occurrence: None)
  Receive Date: 20070821
  Receipt Date: 20070809
  Transmission Date: 20080115
  Serious: Yes (Other)
  Sender: FDA-Public Use
  Company Number: 100#03#2007-02972

PATIENT
  Age: 59 Year
  Sex: Female

DRUGS (3)
  1. CISPLATIN [Suspect]
     Indication: NON-HODGKIN'S LYMPHOMA
     Dosage: 100 MG/M2; DAY 15
  2. GEMCITABINE [Suspect]
     Indication: NON-HODGKIN'S LYMPHOMA
     Dosage: 1 G/M2; DAY 1, 8, 15
  3. METHYLPREDNISOLONE [Suspect]
     Indication: NON-HODGKIN'S LYMPHOMA
     Dosage: 1 G; DAY 1-5

REACTIONS (2)
  - ANAEMIA [None]
  - NEUTROPENIC SEPSIS [None]
